FAERS Safety Report 17419930 (Version 2)
Quarter: 2020Q1

REPORT INFORMATION
  Report Type: Spontaneous
  Country: US (occurrence: US)
  Receive Date: 20200214
  Receipt Date: 20200302
  Transmission Date: 20200409
  Serious: No
  Sender: FDA-Public Use
  Company Number: US-PFIZER INC-2019483319

PATIENT
  Age: 55 Year
  Sex: Female

DRUGS (1)
  1. IBRANCE [Suspect]
     Active Substance: PALBOCICLIB
     Indication: BREAST CANCER FEMALE
     Dosage: 125 MG, CYCLIC [ONE CAPSULE BY MOUTH ONCE DAILY WITH FOOD 21 DAYS OFF]
     Route: 048

REACTIONS (2)
  - Pain [Unknown]
  - Ill-defined disorder [Unknown]
